FAERS Safety Report 15486888 (Version 2)
Quarter: 2018Q4

REPORT INFORMATION
  Report Type: Spontaneous
  Country: DE (occurrence: DE)
  Receive Date: 20181011
  Receipt Date: 20181017
  Transmission Date: 20190205
  Serious: Yes (Death, Life-Threatening, Hospitalization, Other)
  Sender: FDA-Public Use
  Company Number: DE-ACCORD-073054

PATIENT
  Age: 81 Year
  Sex: Female
  Weight: 80 kg

DRUGS (23)
  1. FLUOROURACIL. [Suspect]
     Active Substance: FLUOROURACIL
     Indication: COLORECTAL CANCER
     Dosage: DAY 1,8,15,22,29,36
     Route: 042
     Dates: start: 20131211, end: 20140131
  2. XELODA [Suspect]
     Active Substance: CAPECITABINE
     Indication: COLORECTAL CANCER
     Dosage: DAILY DOSE: 3600 MG MILLGRAM(S) EVERY 3 WEEKS
     Route: 048
     Dates: start: 20131014, end: 20131024
  3. REKAWAN [Concomitant]
     Active Substance: POTASSIUM CHLORIDE
     Indication: BLOOD POTASSIUM DECREASED
     Route: 065
     Dates: start: 20131211
  4. AMPICILLIN/SULBACTAM [Concomitant]
     Indication: SEPSIS
     Route: 065
     Dates: start: 20140217, end: 20140218
  5. ZOFRAN [Concomitant]
     Active Substance: ONDANSETRON HYDROCHLORIDE
     Indication: VOMITING
  6. MORPHINE [Concomitant]
     Active Substance: MORPHINE
     Indication: PAIN
     Route: 065
     Dates: start: 20140218, end: 20140218
  7. FOLINIC ACID [Suspect]
     Active Substance: LEUCOVORIN
     Indication: COLORECTAL CANCER
     Dosage: DAY 1,8,15,22,29,36
     Route: 042
     Dates: start: 20131211, end: 20140131
  8. ALIZAPRIDE [Concomitant]
     Active Substance: ALIZAPRIDE
     Indication: VOMITING
  9. CLEXANE [Concomitant]
     Active Substance: ENOXAPARIN SODIUM
     Indication: THROMBOSIS
     Route: 065
     Dates: start: 20131111, end: 20131121
  10. FENTANYL. [Concomitant]
     Active Substance: FENTANYL
     Indication: PAIN
     Dosage: 25 UG/H
     Route: 065
     Dates: start: 20131022
  11. PANTOZOL [Concomitant]
     Active Substance: PANTOPRAZOLE SODIUM
     Indication: NAUSEA
     Route: 065
     Dates: start: 20130918, end: 20140216
  12. AVASTIN [Suspect]
     Active Substance: BEVACIZUMAB
     Indication: PRODUCT USED FOR UNKNOWN INDICATION
     Dosage: DAY 1,15,29,43
     Route: 042
     Dates: start: 20131211, end: 20140207
  13. NOVALGIN (METAMIZOLE SODIUM) [Concomitant]
     Active Substance: METAMIZOLE SODIUM
     Indication: PAIN
     Dosage: 1-1-1-1
     Route: 048
  14. NITROFURANTOIN/NITROFURANTOIN SODIUM [Concomitant]
     Indication: URINARY TRACT INFECTION
     Route: 065
     Dates: start: 20131106, end: 20131111
  15. DEXAMETHASONE. [Concomitant]
     Active Substance: DEXAMETHASONE
     Indication: NAUSEA
     Route: 065
     Dates: start: 20140103, end: 20140216
  16. METOCLOPRAMIDE. [Concomitant]
     Active Substance: METOCLOPRAMIDE
     Indication: NAUSEA
     Dosage: DAILY DOSE: 30 GTT DROP(S) EVERY AS NECESSARY
     Route: 048
     Dates: start: 20131015, end: 20131121
  17. PALLADON [Concomitant]
     Active Substance: HYDROMORPHONE
     Route: 065
     Dates: start: 20140218, end: 20140218
  18. VERGENTAN [Concomitant]
     Active Substance: ALIZAPRIDE HYDROCHLORIDE
     Indication: NAUSEA
     Route: 065
     Dates: start: 20131015, end: 20131121
  19. NOVAMINSULFON [Concomitant]
     Active Substance: METAMIZOLE
     Indication: PAIN
     Route: 065
     Dates: start: 20130918, end: 20140218
  20. LYRICA [Concomitant]
     Active Substance: PREGABALIN
     Indication: PAIN
     Route: 065
     Dates: start: 20131106
  21. METRONIDAZOLE. [Concomitant]
     Active Substance: METRONIDAZOLE
     Indication: ANTIBIOTIC THERAPY
     Route: 065
     Dates: start: 20131119, end: 20131123
  22. AMOXICILLIN. [Concomitant]
     Active Substance: AMOXICILLIN
     Indication: ANTIBIOTIC THERAPY
     Route: 065
     Dates: start: 20131113, end: 20131118
  23. LOPERAMIDE [Concomitant]
     Active Substance: LOPERAMIDE
     Indication: DIARRHOEA
     Route: 065
     Dates: start: 20131118, end: 20131119

REACTIONS (11)
  - Pyrexia [Unknown]
  - Malignant neoplasm progression [Not Recovered/Not Resolved]
  - Urinary tract infection [Recovered/Resolved]
  - Hypotension [Not Recovered/Not Resolved]
  - Hypotonia [Not Recovered/Not Resolved]
  - Acute kidney injury [Fatal]
  - Hepatic failure [Not Recovered/Not Resolved]
  - Hypoglycaemia [Recovered/Resolved]
  - Sepsis [Fatal]
  - Multiple organ dysfunction syndrome [Fatal]
  - Pain [Recovered/Resolved]

NARRATIVE: CASE EVENT DATE: 20131106
